FAERS Safety Report 4730194-X (Version None)
Quarter: 2005Q3

REPORT INFORMATION
  Report Type: 
  Country: None (occurrence: None)
  Receive Date: 20050801
  Receipt Date: 20050723
  Transmission Date: 20060218
  Serious: Yes (Other)
  Sender: FDA-Public Use
  Company Number: GB-GLAXOSMITHKLINE-B0388609A

PATIENT
  Age: 67 Year
  Sex: Male
  Weight: 85 kg

DRUGS (7)
  1. AVODART [Suspect]
     Indication: PROSTATISM
     Dosage: .5MG PER DAY
     Route: 048
     Dates: start: 20050425, end: 20050701
  2. REPAGLINIDE [Concomitant]
     Dosage: 1MG THREE TIMES PER DAY
     Route: 048
  3. DIPYRIDAMOLE [Concomitant]
     Dosage: 200MG PER DAY
     Route: 048
  4. PERINDOPRIL [Concomitant]
     Dosage: 2MG PER DAY
     Route: 048
  5. ATENOLOL [Concomitant]
     Dosage: 50MG PER DAY
     Route: 048
  6. ATORVASTATIN CALCIUM [Concomitant]
     Dosage: 40MG PER DAY
     Route: 048
  7. BENDROFLUAZIDE [Concomitant]
     Dosage: 2.5MG PER DAY
     Route: 048

REACTIONS (3)
  - ANGIONEUROTIC OEDEMA [None]
  - OEDEMA GENITAL [None]
  - RASH [None]
